FAERS Safety Report 6108612-4 (Version None)
Quarter: 2009Q1

REPORT INFORMATION
  Report Type: 
  Country: None (occurrence: None)
  Receive Date: 20090305
  Receipt Date: 20090220
  Transmission Date: 20090719
  Serious: Yes (Hospitalization)
  Sender: FDA-Public Use
  Company Number: 230035K09BRA

PATIENT
  Age: 45 Year
  Sex: Female

DRUGS (5)
  1. REBIF [Suspect]
     Indication: SECONDARY PROGRESSIVE MULTIPLE SCLEROSIS
     Dosage: 44 MCG, 3 IN 1 WEEKS
     Dates: start: 20080730
  2. EMIPENEM [IMIPENEM] (IMIPENEM) [Concomitant]
  3. VARICONAZOLE [VORICONAZOLE] (VORICONAZOLE) [Concomitant]
  4. INSULIN (INSULIN) [Concomitant]
  5. ENOXAPARIN SODIUM [Concomitant]

REACTIONS (2)
  - DYSPHAGIA [None]
  - LUNG INFECTION [None]
